FAERS Safety Report 4477877-7 (Version None)
Quarter: 2004Q4

REPORT INFORMATION
  Report Type: 
  Country: None (occurrence: None)
  Receive Date: 20041018
  Receipt Date: 20041011
  Transmission Date: 20050328
  Serious: Yes (Hospitalization)
  Sender: FDA-Public Use
  Company Number: DE-MERCK-0410DEU00334

PATIENT
  Age: 68 Year
  Sex: Male

DRUGS (2)
  1. VIOXX [Suspect]
     Route: 048
     Dates: start: 19990101, end: 20020101
  2. VIOXX [Suspect]
     Route: 048
     Dates: end: 20040901

REACTIONS (1)
  - CEREBROVASCULAR ACCIDENT [None]
